FAERS Safety Report 4904015-6 (Version None)
Quarter: 2006Q1

REPORT INFORMATION
  Report Type: 
  Country: None (occurrence: None)
  Receive Date: 20060208
  Receipt Date: 20030923
  Transmission Date: 20060701
  Serious: No
  Sender: FDA-Public Use
  Company Number: US-GLAXOSMITHKLINE-A0428831A

PATIENT
  Sex: Male
  Weight: 73.2 kg

DRUGS (9)
  1. PAXIL [Suspect]
     Dosage: 20MG PER DAY
     Route: 048
     Dates: start: 20020917
  2. ALPRAZOLAM [Concomitant]
     Indication: PANIC ATTACK
     Dosage: .5MG AS REQUIRED
     Route: 048
     Dates: start: 20020917
  3. TEMAZEPAM [Concomitant]
     Indication: DEPRESSION
     Dosage: 15MG AS REQUIRED
     Route: 048
     Dates: start: 20031007
  4. VENLAFAXINE HCL [Concomitant]
     Indication: DRUG USE FOR UNKNOWN INDICATION
     Dosage: 37.5MG THREE TIMES PER DAY
     Route: 048
     Dates: start: 20031006
  5. LOVASTATIN [Concomitant]
     Indication: BLOOD CHOLESTEROL INCREASED
     Route: 048
     Dates: start: 20030305
  6. FOLIC ACID [Concomitant]
     Indication: VITAMIN SUPPLEMENTATION
     Dosage: 1MG PER DAY
     Route: 048
     Dates: start: 20030305
  7. THIAMINE [Concomitant]
     Indication: DRUG USE FOR UNKNOWN INDICATION
     Dosage: 100MG PER DAY
     Route: 048
     Dates: start: 20030305
  8. LIPITOR [Concomitant]
  9. XANAX [Concomitant]

REACTIONS (1)
  - DRUG WITHDRAWAL SYNDROME [None]
